FAERS Safety Report 7916956-6 (Version None)
Quarter: 2011Q4

REPORT INFORMATION
  Report Type: 
  Country: None (occurrence: None)
  Receive Date: 20111116
  Receipt Date: 20111109
  Transmission Date: 20120403
  Serious: Yes (Hospitalization)
  Sender: FDA-Public Use
  Company Number: US-B.I. PHARMACEUTICALS,INC./RIDGEFIELD-2011-BP-22914BP

PATIENT
  Age: 72 Year
  Sex: Male
  Weight: 102.5 kg

DRUGS (11)
  1. PRADAXA [Suspect]
     Indication: ANTICOAGULANT THERAPY
     Dosage: 300 MG
     Dates: start: 20101207, end: 20110101
  2. ASPIRIN [Concomitant]
     Dosage: 81 MG
  3. METOPROLOL [Concomitant]
     Dosage: 100 MG
  4. ALLOPURINOL [Concomitant]
     Dosage: 300 MG
  5. CILOSTAZOL [Concomitant]
     Dosage: 200 MG
  6. FOLTX [Concomitant]
  7. PRADAXA [Suspect]
     Indication: ATRIAL FIBRILLATION
  8. DIOVAN HCT [Concomitant]
  9. JANUVIA [Concomitant]
     Dosage: 100 MG
  10. PRAVASTATIN [Concomitant]
     Dosage: 10 MG
  11. PRANDIN [Concomitant]
     Dosage: 6 MG

REACTIONS (2)
  - GASTROINTESTINAL HAEMORRHAGE [None]
  - RENAL DISORDER [None]
